FAERS Safety Report 6155359-4 (Version None)
Quarter: 2009Q2

REPORT INFORMATION
  Report Type: 
  Country: None (occurrence: None)
  Receive Date: 20090415
  Receipt Date: 20090406
  Transmission Date: 20091009
  Serious: Yes (Death)
  Sender: FDA-Public Use
  Company Number: IR-BAYER-200910422GPV

PATIENT
  Age: 60 Year
  Sex: Male
  Weight: 100 kg

DRUGS (2)
  1. FLUDARA [Suspect]
     Indication: CHRONIC LYMPHOCYTIC LEUKAEMIA
     Dosage: CYCLE 1
     Route: 042
     Dates: start: 20070605, end: 20070609
  2. FLUDARA [Suspect]
     Dosage: CYCLE 2
     Route: 042
     Dates: start: 20070703, end: 20070707

REACTIONS (1)
  - MYOCARDIAL INFARCTION [None]
